FAERS Safety Report 7781292-8 (Version None)
Quarter: 2011Q3

REPORT INFORMATION
  Report Type: 
  Country: None (occurrence: None)
  Receive Date: 20110927
  Receipt Date: 20110916
  Transmission Date: 20111222
  Serious: Yes (Other)
  Sender: FDA-Public Use
  Company Number: GB-PFIZER INC-2011157979

PATIENT
  Age: 61 Year
  Sex: Female

DRUGS (5)
  1. QUETIAPINE [Concomitant]
     Dosage: 25 MG, UNK
  2. ZOPICLONE [Concomitant]
     Dosage: 3.75 MG, UNK
  3. MIRTAZAPINE [Suspect]
     Dosage: 45 MG, 1X/DAY
  4. LORAZEPAM [Concomitant]
     Dosage: 0.5 MG, AS NEEDED
  5. LYRICA [Suspect]
     Dosage: 50 MG, 3X/DAY

REACTIONS (2)
  - HEPATIC STEATOSIS [None]
  - OEDEMA PERIPHERAL [None]
